FAERS Safety Report 8909618 (Version 1)
Quarter: 2012Q4

REPORT INFORMATION
  Report Type: 
  Country: US (occurrence: US)
  Receive Date: 20121114
  Receipt Date: 20121114
  Transmission Date: 20130627
  Serious: Yes (Death)
  Sender: FDA-Public Use
  Company Number: US-009507513-1211USA005722

PATIENT
  Age: 63 Year
  Sex: Female

DRUGS (3)
  1. TEMODAR [Suspect]
     Indication: BRAIN NEOPLASM
     Dosage: Dose: 1Standard dose of 14
     Dates: end: 201210
  2. MORPHINE [Concomitant]
     Indication: BRAIN NEOPLASM
  3. XANAX [Concomitant]
     Indication: BRAIN NEOPLASM

REACTIONS (1)
  - Brain neoplasm [Fatal]
